FAERS Safety Report 4352598-X (Version None)
Quarter: 2004Q2

REPORT INFORMATION
  Report Type: 
  Country: None (occurrence: None)
  Receive Date: 20040420
  Receipt Date: 20040302
  Transmission Date: 20050107
  Serious: No
  Sender: FDA-Public Use
  Company Number: 2003191345US

PATIENT
  Sex: Male

DRUGS (1)
  1. INSPRA [Suspect]

REACTIONS (8)
  - ABDOMINAL PAIN [None]
  - CONSTIPATION [None]
  - COUGH [None]
  - DIZZINESS [None]
  - FATIGUE [None]
  - FLATULENCE [None]
  - FLUSHING [None]
  - NERVOUSNESS [None]
